FAERS Safety Report 5717658-7 (Version None)
Quarter: 2008Q2

REPORT INFORMATION
  Report Type: 
  Country: None (occurrence: None)
  Receive Date: 20080425
  Receipt Date: 20080416
  Transmission Date: 20081010
  Serious: Yes (Other)
  Sender: FDA-Public Use
  Company Number: US-ROCHE-547861

PATIENT
  Sex: Female

DRUGS (3)
  1. PEG-INTERFERON A-2A (RO 25-8310) [Suspect]
     Dosage: FORMULATION REPORTED AS PRE-FILLED SYRINGE. PATIENT REPORTED IN WEEK 12.
     Route: 065
     Dates: start: 20080125
  2. RIBAVIRIN [Suspect]
     Dosage: WEEK 12 OF THERAPY
     Route: 065
     Dates: start: 20080125
  3. CLARITIN [Concomitant]

REACTIONS (8)
  - COUGH [None]
  - DYSGEUSIA [None]
  - GINGIVAL INFECTION [None]
  - NEUTROPHIL COUNT DECREASED [None]
  - PLATELET COUNT DECREASED [None]
  - RED BLOOD CELL COUNT DECREASED [None]
  - WEIGHT DECREASED [None]
  - WHITE BLOOD CELL COUNT DECREASED [None]
